FAERS Safety Report 4848023-2 (Version None)
Quarter: 2005Q4

REPORT INFORMATION
  Report Type: 
  Country: None (occurrence: None)
  Receive Date: 20051208
  Receipt Date: 20051130
  Transmission Date: 20060501
  Serious: Yes (Hospitalization, Other)
  Sender: FDA-Public Use
  Company Number: PHNU2005DE03955

PATIENT
  Age: 35 Year
  Sex: Female

DRUGS (1)
  1. VOLTAREN [Suspect]
     Indication: PAIN IN EXTREMITY
     Dosage: 1 DF, ONCE/SINGLE

REACTIONS (6)
  - AMNIOCENTESIS ABNORMAL [None]
  - AMNIORRHEXIS [None]
  - BIOPSY CHORIONIC VILLOUS ABNORMAL [None]
  - FOETAL DISORDER [None]
  - PLACENTAL INSUFFICIENCY [None]
  - STILLBIRTH [None]
